FAERS Safety Report 12797814 (Version 1)
Quarter: 2016Q3

REPORT INFORMATION
  Report Type: Spontaneous
  Country: US (occurrence: US)
  Receive Date: 20160930
  Receipt Date: 20160930
  Transmission Date: 20161109
  Serious: No
  Sender: FDA-Public Use
  Company Number: US-GLAXOSMITHKLINE-US2016GSK142867

PATIENT
  Sex: Female

DRUGS (1)
  1. TANZEUM [Suspect]
     Active Substance: ALBIGLUTIDE
     Indication: WEIGHT CONTROL
     Dosage: 50 MG, WE
     Dates: start: 201604

REACTIONS (4)
  - Device leakage [Unknown]
  - Intentional product use issue [Unknown]
  - Device use error [Unknown]
  - Wrong technique in product usage process [Unknown]
